FAERS Safety Report 7274266-7 (Version None)
Quarter: 2011Q1

REPORT INFORMATION
  Report Type: 
  Country: None (occurrence: None)
  Receive Date: 20110204
  Receipt Date: 20110121
  Transmission Date: 20110831
  Serious: Yes (Hospitalization)
  Sender: FDA-Public Use
  Company Number: IT-RANBAXY-2011R1-41426

PATIENT
  Sex: Male

DRUGS (1)
  1. LORAZEPAM [Suspect]
     Indication: PRODUCT USED FOR UNKNOWN INDICATION
     Dosage: UNK
     Route: 065

REACTIONS (4)
  - DYSARTHRIA [None]
  - BRADYKINESIA [None]
  - BRADYPHRENIA [None]
  - CONFUSIONAL STATE [None]
